FAERS Safety Report 8779274 (Version 2)
Quarter: 2013Q4

REPORT INFORMATION
  Report Type: Spontaneous
  Country: US (occurrence: US)
  Receive Date: 20120912
  Receipt Date: 20131101
  Transmission Date: 20140711
  Serious: No
  Sender: FDA-Public Use
  Company Number: US-009507513-1209USA003934

PATIENT
  Sex: 0
  Weight: 96.15 kg

DRUGS (9)
  1. SIMVASTATIN TABLETS, USP [Suspect]
     Dosage: 1 DF, QD
     Route: 048
  2. ASMANEX TWISTHALER [Suspect]
     Dosage: 2 DF, QD, 120 METERED DOSES 220 MCG/INH AEPB
     Route: 055
  3. ASMANEX TWISTHALER [Suspect]
     Dosage: 120 METERED DOSES 220 MCG/INH AEPB
     Route: 055
  4. BUPROPION HYDROCHLORIDE [Concomitant]
     Dosage: XR12H-TAB
  5. FORADIL AEROLIZER [Concomitant]
     Dosage: 1 DF, QD
  6. FLEXERIL [Concomitant]
     Dosage: 1 DF, PRN
  7. ASPIRIN [Concomitant]
     Dosage: 1 DF, QD
     Route: 048
  8. PLAVIX [Concomitant]
     Dosage: 1 DF, QD
     Route: 048
  9. BUPROPION HYDROCHLORIDE [Concomitant]
     Dosage: 1 DF, UNK

REACTIONS (1)
  - Chronic obstructive pulmonary disease [Unknown]
